FAERS Safety Report 25988116 (Version 1)
Quarter: 2025Q4

REPORT INFORMATION
  Report Type: Spontaneous
  Country: CN (occurrence: CN)
  Receive Date: 20251103
  Receipt Date: 20251103
  Transmission Date: 20260118
  Serious: Yes (Life-Threatening, Hospitalization, Other)
  Sender: Onesource Specialty Pharma
  Company Number: CN-STRIDES ARCOLAB LIMITED-2025OS001056

PATIENT
  Age: 27 Year
  Sex: Female

DRUGS (19)
  1. PIPERACILLIN SODIUM\TAZOBACTAM SODIUM [Suspect]
     Active Substance: PIPERACILLIN SODIUM\TAZOBACTAM SODIUM
     Indication: Antibiotic therapy
     Dosage: 4.5 GRAM, Q8H
     Route: 042
     Dates: start: 202410
  2. CETIRIZINE [Suspect]
     Active Substance: CETIRIZINE HYDROCHLORIDE
     Indication: Dermatitis allergic
     Dosage: UNK
     Route: 065
     Dates: start: 202412
  3. ACYCLOVIR [Suspect]
     Active Substance: ACYCLOVIR
     Indication: Evidence based treatment
     Dosage: 500 MILLIGRAM, Q8H
     Route: 042
     Dates: start: 202410
  4. CEFOPERAZONE\SULBACTAM [Suspect]
     Active Substance: CEFOPERAZONE\SULBACTAM
     Indication: Pneumonia
     Dosage: 4 GRAM, BID
     Route: 042
     Dates: start: 202411
  5. CEFTRIAXONE [Suspect]
     Active Substance: CEFTRIAXONE
     Indication: Antibiotic therapy
     Dosage: 2 GRAM, QD
     Route: 042
     Dates: start: 202410
  6. COLISTIN SULFATE [Suspect]
     Active Substance: COLISTIN SULFATE
     Indication: Pneumonia
     Dosage: 750000 INTERNATIONAL UNIT, BID
     Route: 042
     Dates: start: 202411
  7. DEXMEDETOMIDINE [Suspect]
     Active Substance: DEXMEDETOMIDINE
     Indication: Seizure
     Dosage: UNK
     Route: 065
     Dates: start: 202411
  8. EBASTINE [Suspect]
     Active Substance: EBASTINE
     Indication: Dermatitis allergic
     Dosage: UNK
     Route: 065
     Dates: start: 202412
  9. ILAPRAZOLE [Suspect]
     Active Substance: ILAPRAZOLE
     Indication: Vomiting
     Dosage: UNK, ENTERIC-COATED TABLETS
     Dates: start: 202410
  10. LACOSAMIDE [Suspect]
     Active Substance: LACOSAMIDE
     Indication: Seizure
     Dosage: UNK
     Route: 065
     Dates: start: 202411
  11. LACOSAMIDE [Suspect]
     Active Substance: LACOSAMIDE
     Dosage: 100 MILLIGRAM, BID
     Route: 042
     Dates: start: 202411
  12. MANNITOL [Suspect]
     Active Substance: MANNITOL
     Indication: Intracranial pressure increased
     Dosage: 125 MILLILITER, Q8H
     Route: 042
     Dates: start: 202410
  13. MANNITOL [Suspect]
     Active Substance: MANNITOL
     Dosage: 125 MILLILITER, Q6H
     Route: 042
     Dates: start: 2024
  14. MEROPENEM [Suspect]
     Active Substance: MEROPENEM
     Indication: Pneumonia
     Dosage: 1000 MILLIGRAM, Q8H
     Route: 042
     Dates: start: 202411
  15. OXYTOCIN [Suspect]
     Active Substance: OXYTOCIN
     Indication: Uterine contractions during pregnancy
     Dosage: UNK
     Route: 065
     Dates: start: 202411
  16. PHENOBARBITAL [Suspect]
     Active Substance: PHENOBARBITAL
     Indication: Seizure
     Dosage: UNK
     Route: 065
     Dates: start: 202411
  17. SUCRALFATE [Suspect]
     Active Substance: SUCRALFATE
     Indication: Vomiting
     Dosage: UNK
     Dates: start: 202410
  18. TIGECYCLINE [Suspect]
     Active Substance: TIGECYCLINE
     Indication: Pneumonia
     Dosage: 50 MILLIGRAM, BID
     Route: 042
     Dates: start: 202411
  19. TIGECYCLINE [Suspect]
     Active Substance: TIGECYCLINE
     Dosage: 100 MILLIGRAM, BID
     Route: 042
     Dates: start: 202411

REACTIONS (6)
  - Malnutrition [None]
  - Hyponatraemia [None]
  - Acid base balance abnormal [None]
  - Thrombosis [None]
  - Hypertransaminasaemia [None]
  - Maternal exposure during pregnancy [Unknown]

NARRATIVE: CASE EVENT DATE: 20240101
